FAERS Safety Report 5946729-5 (Version None)
Quarter: 2008Q4

REPORT INFORMATION
  Report Type: 
  Country: None (occurrence: None)
  Receive Date: 20081107
  Receipt Date: 20081107
  Transmission Date: 20090506
  Serious: Yes (Life-Threatening)
  Sender: FDA-Public Use
  Company Number: None

PATIENT
  Age: 71 Year
  Sex: Female
  Weight: 122 kg

DRUGS (6)
  1. ZYVOX [Suspect]
     Indication: WOUND INFECTION STAPHYLOCOCCAL
     Dosage: 600 MG EVERY 12 HRS PO
     Route: 048
     Dates: start: 20081103, end: 20081106
  2. DIFLUCAN [Concomitant]
  3. ARIXTRA [Concomitant]
  4. LEVOTHYROXINE SODIUM [Concomitant]
  5. IRON [Concomitant]
  6. ASCORBIC ACID [Concomitant]

REACTIONS (3)
  - DYSPNOEA [None]
  - OXYGEN SATURATION DECREASED [None]
  - SENSATION OF HEAVINESS [None]
